FAERS Safety Report 5565827-1 (Version None)
Quarter: 2007Q4

REPORT INFORMATION
  Report Type: 
  Country: None (occurrence: None)
  Receive Date: 20071213
  Receipt Date: 20071206
  Transmission Date: 20080405
  Serious: Yes (Hospitalization)
  Sender: FDA-Public Use
  Company Number: 028-C5013-07081478

PATIENT
  Age: 34 Year
  Sex: Male
  Weight: 74.8435 kg

DRUGS (7)
  1. CC-5013 (LENALIDOMIDE) (CAPSULES) [Suspect]
     Indication: NON-HODGKIN'S LYMPHOMA
     Dosage: 20 MG, OD X21 DAYS, ORAL : 25 MG, OD X21 DAYS, ORAL
     Route: 048
     Dates: start: 20070813, end: 20070819
  2. CC-5013 (LENALIDOMIDE) (CAPSULES) [Suspect]
     Indication: NON-HODGKIN'S LYMPHOMA
     Dosage: 20 MG, OD X21 DAYS, ORAL : 25 MG, OD X21 DAYS, ORAL
     Route: 048
     Dates: start: 20070823
  3. PAMIDRONATE DISODIUM [Concomitant]
  4. ALLOPURINOL [Concomitant]
  5. SEPTRA [Concomitant]
  6. FENTANYL (FENTANYL) (POULTICE OR PATCH) [Concomitant]
  7. PERCOCET [Concomitant]

REACTIONS (8)
  - ANAEMIA [None]
  - DISEASE PROGRESSION [None]
  - LUNG CONSOLIDATION [None]
  - PELVIC FLUID COLLECTION [None]
  - PLEURAL EFFUSION [None]
  - PULMONARY HYPERTENSION [None]
  - THROMBOCYTOPENIA [None]
  - TUMOUR FLARE [None]
